FAERS Safety Report 8590126-3 (Version None)
Quarter: 2012Q3

REPORT INFORMATION
  Report Type: 
  Country: None (occurrence: None)
  Receive Date: 20120813
  Receipt Date: 20120112
  Transmission Date: 20120928
  Serious: Yes (Hospitalization)
  Sender: FDA-Public Use
  Company Number: US-ROCHE-1100474

PATIENT
  Age: 45 Year
  Sex: Female

DRUGS (3)
  1. TYLENOL [Concomitant]
  2. MEPERIDINE HCL [Concomitant]
  3. ACTIVASE [Suspect]
     Indication: MYOCARDIAL INFARCTION
     Route: 042

REACTIONS (1)
  - CHEST DISCOMFORT [None]
